FAERS Safety Report 5573738-0 (Version None)
Quarter: 2007Q4

REPORT INFORMATION
  Report Type: 
  Country: None (occurrence: None)
  Receive Date: 20071226
  Receipt Date: 20071224
  Transmission Date: 20080405
  Serious: Yes (Other)
  Sender: FDA-Public Use
  Company Number: SE-BRISTOL-MYERS SQUIBB COMPANY-14024277

PATIENT
  Sex: Male

DRUGS (2)
  1. CYCLOPHOSPHAMIDE [Suspect]
     Indication: MULTIFOCAL MOTOR NEUROPATHY
  2. ANTITHYMOCYTE GLOBULIN [Suspect]
     Indication: MULTIFOCAL MOTOR NEUROPATHY

REACTIONS (7)
  - DYSARTHRIA [None]
  - IIIRD NERVE PARESIS [None]
  - MUSCULAR WEAKNESS [None]
  - NEUTROPENIA [None]
  - PARESIS [None]
  - PYREXIA [None]
  - RESPIRATORY FAILURE [None]
